FAERS Safety Report 24074485 (Version 1)
Quarter: 2024Q3

REPORT INFORMATION
  Report Type: Spontaneous
  Country: US (occurrence: US)
  Receive Date: 20240710
  Receipt Date: 20240710
  Transmission Date: 20241016
  Serious: No
  Sender: PIERRE FABRE MEDICAMENT
  Company Number: US-PFM-2024-01361

PATIENT
  Sex: Female
  Weight: 6.989 kg

DRUGS (2)
  1. HEMANGEOL [Suspect]
     Active Substance: PROPRANOLOL HYDROCHLORIDE
     Indication: Haemangioma
     Dosage: 1.7 ML IN THE AM AND 1.2 ML IN THE PM, BID (2/DAY)
     Route: 048
  2. HEMANGEOL [Suspect]
     Active Substance: PROPRANOLOL HYDROCHLORIDE
     Dosage: 1.7 ML IN THE AM AND 1.2 ML IN THE PM, BID (2/DAY)
     Route: 048

REACTIONS (2)
  - Sleep disorder [Unknown]
  - Product substitution issue [Unknown]
